FAERS Safety Report 17222719 (Version 1)
Quarter: 2020Q1

REPORT INFORMATION
  Report Type: Spontaneous
  Country: US (occurrence: US)
  Receive Date: 20200102
  Receipt Date: 20200102
  Transmission Date: 20200409
  Serious: No
  Sender: FDA-Public Use
  Company Number: US-AMGEN INC.-USASP2019215779

PATIENT
  Age: 72 Year
  Sex: Female

DRUGS (3)
  1. MAXALT [Concomitant]
     Active Substance: RIZATRIPTAN BENZOATE
     Dosage: 1/2 A DOSE
  2. ESTRADIOL. [Concomitant]
     Active Substance: ESTRADIOL
     Dosage: 0.375 MILLIGRAM, QWK
     Route: 065
  3. AIMOVIG [Suspect]
     Active Substance: ERENUMAB-AOOE
     Indication: MIGRAINE
     Dosage: 140 MILLIGRAM
     Route: 065
     Dates: start: 201906

REACTIONS (3)
  - Wrong technique in product usage process [Unknown]
  - Product storage error [Unknown]
  - Device issue [Unknown]

NARRATIVE: CASE EVENT DATE: 201907
